FAERS Safety Report 7959227-4 (Version None)
Quarter: 2011Q4

REPORT INFORMATION
  Report Type: 
  Country: None (occurrence: None)
  Receive Date: 20111201
  Receipt Date: 20111116
  Transmission Date: 20120403
  Serious: Yes (Hospitalization, Other)
  Sender: FDA-Public Use
  Company Number: 2011AP002727

PATIENT
  Age: 33 Year
  Sex: Female

DRUGS (4)
  1. CYCLOSPORINE [Suspect]
     Indication: MAJOR DEPRESSION
  2. VENLAFAXINE [Suspect]
     Indication: MAJOR DEPRESSION
     Dosage: 37.5 MG;TID, 150 MG;QD
  3. DESVENLAFAXINE [Concomitant]
  4. TACROLIMUS [Concomitant]

REACTIONS (3)
  - NYSTAGMUS [None]
  - DRUG INTERACTION [None]
  - SEROTONIN SYNDROME [None]
